FAERS Safety Report 6920787-3 (Version None)
Quarter: 2010Q3

REPORT INFORMATION
  Report Type: 
  Country: None (occurrence: None)
  Receive Date: 20100812
  Receipt Date: 20100803
  Transmission Date: 20110219
  Serious: Yes (Other)
  Sender: FDA-Public Use
  Company Number: CA-ABBOTT-10P-028-0660893-00

PATIENT
  Sex: Male
  Weight: 88.53 kg

DRUGS (8)
  1. HUMIRA [Suspect]
     Indication: RHEUMATOID ARTHRITIS
     Route: 058
     Dates: start: 20091020
  2. HUMIRA [Suspect]
     Dates: start: 20100802
  3. MORPHINE [Suspect]
     Indication: PAIN
     Route: 042
     Dates: start: 20100728
  4. NEXIUM [Concomitant]
     Indication: GASTRIC DISORDER
     Route: 048
  5. PLAQUENIL [Concomitant]
     Indication: RHEUMATOID ARTHRITIS
     Route: 048
  6. CYMBALTA [Concomitant]
     Indication: DEPRESSION
     Route: 048
  7. FLUOXETINE [Concomitant]
     Indication: DEPRESSION
     Route: 048
  8. HYZAAR [Concomitant]
     Indication: HYPERTENSION
     Route: 048

REACTIONS (5)
  - GAIT DISTURBANCE [None]
  - NERVE COMPRESSION [None]
  - PAIN [None]
  - PRURITUS GENERALISED [None]
  - SWELLING FACE [None]
